FAERS Safety Report 17029858 (Version 2)
Quarter: 2019Q4

REPORT INFORMATION
  Report Type: Spontaneous
  Country: NI (occurrence: NI)
  Receive Date: 20191114
  Receipt Date: 20191128
  Transmission Date: 20200122
  Serious: Yes (Other)
  Sender: FDA-Public Use
  Company Number: NVSC2019NI033571

PATIENT
  Age: 52 Year
  Sex: Male
  Weight: 158.73 kg

DRUGS (4)
  1. EXFORGE [Suspect]
     Active Substance: AMLODIPINE BESYLATE\VALSARTAN
     Dosage: 1 DF, QD (10/320 MG)
     Route: 048
     Dates: start: 20191024
  2. CLONAZEPAM. [Concomitant]
     Active Substance: CLONAZEPAM
     Indication: INSOMNIA
     Dosage: 2 MG, QD
     Route: 048
  3. MAGNUM [Concomitant]
     Indication: GASTROINTESTINAL DISORDER
     Dosage: UNK
     Route: 065
  4. EXFORGE [Suspect]
     Active Substance: AMLODIPINE BESYLATE\VALSARTAN
     Indication: HYPERTENSION
     Dosage: 1 DF, QD (5/320 MG)
     Route: 048
     Dates: start: 201806

REACTIONS (8)
  - Headache [Unknown]
  - Feeling hot [Unknown]
  - Cardiac failure [Unknown]
  - Suffocation feeling [Unknown]
  - Chest discomfort [Unknown]
  - Choking [Unknown]
  - Chest pain [Unknown]
  - Rash [Unknown]

NARRATIVE: CASE EVENT DATE: 201806
